FAERS Safety Report 10273667 (Version 1)
Quarter: 2014Q2

REPORT INFORMATION
  Report Type: Spontaneous
  Country: US (occurrence: None)
  Receive Date: 20140630
  Receipt Date: 20140630
  Transmission Date: 20141212
  Serious: Yes (Hospitalization)
  Sender: FDA-Public Use
  Company Number: None

PATIENT
  Age: 54 Year
  Sex: Male
  Weight: 60.5 kg

DRUGS (1)
  1. CETUXIMAB (ERBITUX) (714692) [Suspect]

REACTIONS (6)
  - Pneumonia [None]
  - Neck pain [None]
  - Pulmonary embolism [None]
  - Oropharyngeal pain [None]
  - Local swelling [None]
  - Dysphagia [None]
